FAERS Safety Report 24240007 (Version 1)
Quarter: 2024Q3

REPORT INFORMATION
  Report Type: Spontaneous
  Country: US (occurrence: US)
  Receive Date: 20240822
  Receipt Date: 20240822
  Transmission Date: 20241017
  Serious: No
  Sender: BAUSCH AND LOMB
  Company Number: US-BAUSCH-BL-2024-012465

PATIENT
  Sex: Male

DRUGS (3)
  1. ATIVAN [Suspect]
     Active Substance: LORAZEPAM
     Indication: Sleep disorder
     Dosage: 1MG AT BEDTIME
     Route: 065
     Dates: start: 202305
  2. ATIVAN [Suspect]
     Active Substance: LORAZEPAM
     Indication: Off label use
     Dosage: 2 MG AT BEDTIME
     Route: 065
  3. ATIVAN [Suspect]
     Active Substance: LORAZEPAM
     Route: 065

REACTIONS (5)
  - Brain fog [Unknown]
  - Loss of personal independence in daily activities [Unknown]
  - Somnolence [Unknown]
  - Asthenia [Unknown]
  - Off label use [Unknown]
